FAERS Safety Report 16586621 (Version 1)
Quarter: 2019Q3

REPORT INFORMATION
  Report Type: Spontaneous
  Country: US (occurrence: US)
  Receive Date: 20190717
  Receipt Date: 20190717
  Transmission Date: 20191004
  Serious: Yes (Hospitalization)
  Sender: FDA-Public Use
  Company Number: US-TEVA-2019-US-1077829

PATIENT
  Age: 76 Year
  Sex: Male

DRUGS (3)
  1. ENOXAPARIN [Suspect]
     Active Substance: ENOXAPARIN
     Indication: DEVICE RELATED THROMBOSIS
     Route: 065
  2. HEPARIN [Suspect]
     Active Substance: HEPARIN SODIUM
     Indication: DEVICE RELATED THROMBOSIS
     Route: 065
  3. WARFARIN [Suspect]
     Active Substance: WARFARIN
     Indication: DEVICE RELATED THROMBOSIS
     Route: 065

REACTIONS (1)
  - Haemorrhage intracranial [Not Recovered/Not Resolved]
